FAERS Safety Report 6450031-5 (Version None)
Quarter: 2009Q4

REPORT INFORMATION
  Report Type: 
  Country: None (occurrence: None)
  Receive Date: 20091123
  Receipt Date: 20091117
  Transmission Date: 20100525
  Serious: Yes (Other)
  Sender: FDA-Public Use
  Company Number: DE-ALLERGAN-0915990US

PATIENT
  Sex: Male

DRUGS (3)
  1. BIMATOPROST AND TIMOLOL MALEATE [Suspect]
     Indication: GLAUCOMA
     Route: 047
  2. BETA BLOCKING AGENTS [Concomitant]
     Indication: HYPERTENSION
  3. UNSPECIFIED GLAUCOMA MEDICATIONS [Concomitant]
     Indication: GLAUCOMA

REACTIONS (1)
  - INTRAOCULAR PRESSURE INCREASED [None]
